FAERS Safety Report 18011834 (Version 2)
Quarter: 2020Q3

REPORT INFORMATION
  Report Type: Spontaneous
  Country: US (occurrence: US)
  Receive Date: 20200713
  Receipt Date: 20200731
  Transmission Date: 20201103
  Serious: Yes (Other)
  Sender: FDA-Public Use
  Company Number: US-HORIZON-ACT-0259-2020

PATIENT
  Age: 41 Year
  Sex: Female

DRUGS (13)
  1. SYNTHROID [Concomitant]
     Active Substance: LEVOTHYROXINE SODIUM
  2. TRIAMCINOLONE [Concomitant]
     Active Substance: TRIAMCINOLONE
  3. COLACE [Concomitant]
     Active Substance: DOCUSATE SODIUM
  4. VALTREX [Concomitant]
     Active Substance: VALACYCLOVIR HYDROCHLORIDE
  5. CLOBETASOL [Concomitant]
     Active Substance: CLOBETASOL
  6. MUPIROCIN. [Concomitant]
     Active Substance: MUPIROCIN
  7. PROTONIX [Concomitant]
     Active Substance: PANTOPRAZOLE SODIUM
  8. BRENTUXIMAB VIDOTIN [Concomitant]
     Indication: CUTANEOUS T-CELL LYMPHOMA
  9. DOXYCYCLINE. [Concomitant]
     Active Substance: DOXYCYCLINE
  10. ACTIMMUNE [Suspect]
     Active Substance: INTERFERON GAMMA-1B
     Indication: CUTANEOUS T-CELL LYMPHOMA
     Dosage: 100 MCG^S 3 TIMES WEEKLY
     Dates: start: 201808, end: 202004
  11. IRON [Concomitant]
     Active Substance: IRON
  12. BENADRYL [Concomitant]
     Active Substance: DIPHENHYDRAMINE HYDROCHLORIDE
  13. BACTRIM [Concomitant]
     Active Substance: SULFAMETHOXAZOLE\TRIMETHOPRIM

REACTIONS (4)
  - Off label use [Recovered/Resolved]
  - Cutaneous T-cell lymphoma [Not Recovered/Not Resolved]
  - Condition aggravated [Not Recovered/Not Resolved]
  - Drug ineffective for unapproved indication [Unknown]

NARRATIVE: CASE EVENT DATE: 201808
